FAERS Safety Report 5098697-9 (Version None)
Quarter: 2006Q3

REPORT INFORMATION
  Report Type: 
  Country: None (occurrence: None)
  Receive Date: 20060905
  Receipt Date: 20060825
  Transmission Date: 20061208
  Serious: Yes (Hospitalization, Other)
  Sender: FDA-Public Use
  Company Number: 30153

PATIENT
  Age: 58 Year
  Sex: Male

DRUGS (1)
  1. CYTARABINE [Suspect]
     Indication: CHRONIC LYMPHOCYTIC LEUKAEMIA TRANSFORMATION
     Dosage: 1 G/M2, DAYS 2 TO 3
     Dates: start: 20060406, end: 20060409

REACTIONS (3)
  - BLINDNESS [None]
  - HYPERTENSION [None]
  - RETINAL HAEMORRHAGE [None]
